FAERS Safety Report 5818955-7 (Version None)
Quarter: 2008Q3

REPORT INFORMATION
  Report Type: 
  Country: None (occurrence: None)
  Receive Date: 20080723
  Receipt Date: 20080716
  Transmission Date: 20090109
  Serious: Yes (Hospitalization, Disabling)
  Sender: FDA-Public Use
  Company Number: US-BAYER-200828211NA

PATIENT
  Age: 29 Year
  Sex: Female
  Weight: 64 kg

DRUGS (1)
  1. MIRENA [Suspect]
     Indication: CONTRACEPTION
     Route: 015
     Dates: start: 20060301

REACTIONS (3)
  - ACNE [None]
  - HIRSUTISM [None]
  - IUD MIGRATION [None]
